FAERS Safety Report 8181030-3 (Version None)
Quarter: 2012Q1

REPORT INFORMATION
  Report Type: 
  Country: None (occurrence: None)
  Receive Date: 20120302
  Receipt Date: 20120224
  Transmission Date: 20120608
  Serious: Yes (Other)
  Sender: FDA-Public Use
  Company Number: JP-PFIZER INC-2012048791

PATIENT

DRUGS (2)
  1. ZYVOX [Suspect]
  2. AZULFIDINE [Suspect]

REACTIONS (1)
  - INTERSTITIAL LUNG DISEASE [None]
